FAERS Safety Report 9702670 (Version 2)
Quarter: 2013Q4

REPORT INFORMATION
  Report Type: Spontaneous
  Country: BE (occurrence: BE)
  Receive Date: 20131121
  Receipt Date: 20131126
  Transmission Date: 20140711
  Serious: Yes (Other)
  Sender: FDA-Public Use
  Company Number: BE-BAXTER-2013BAX045632

PATIENT
  Sex: Male
  Weight: 80 kg

DRUGS (4)
  1. EXTRANEAL, SOLUTION POUR DIALYSE P?RITON?ALE [Suspect]
     Indication: PERITONEAL DIALYSIS
     Route: 033
  2. BICLAR [Concomitant]
     Indication: ENDOSCOPY UPPER GASTROINTESTINAL TRACT
  3. CLAMOXYL [Concomitant]
     Indication: ENDOSCOPY UPPER GASTROINTESTINAL TRACT
  4. PANTOMED [Concomitant]
     Indication: ENDOSCOPY UPPER GASTROINTESTINAL TRACT

REACTIONS (1)
  - Noninfectious peritonitis [Recovered/Resolved]
